FAERS Safety Report 21051197 (Version 1)
Quarter: 2022Q3

REPORT INFORMATION
  Report Type: Spontaneous
  Country: NL (occurrence: NL)
  Receive Date: 20220707
  Receipt Date: 20220707
  Transmission Date: 20221026
  Serious: Yes (Life-Threatening, Hospitalization)
  Sender: FDA-Public Use
  Company Number: None

PATIENT
  Age: 75 Year
  Sex: Male

DRUGS (11)
  1. OMEPRAZOLE [Suspect]
     Active Substance: OMEPRAZOLE
     Indication: Product used for unknown indication
     Dosage: 40 MILLIGRAM DAILY; MSR ,FORM STRENGTH 20MG/ BRAND NAME NOT SPECIFIED
     Dates: start: 2018, end: 20220613
  2. AMLODIPINE PCH [Concomitant]
     Indication: Product used for unknown indication
     Dosage: AMLODIPINE TABLET 10MG / AMLODIPINE PCH TABLET 10MG (ALS BESILAAT)
  3. METOPROLOL SUCCINATE [Concomitant]
     Active Substance: METOPROLOL SUCCINATE
     Indication: Product used for unknown indication
     Dosage: MGA, FORM STRENGTH 50 MG / BRAND NAME NOT SPECIFIED, THERAPY START DATE AND END DATE: ASKU
  4. HYDROCHLOROTHIAZIDE\TELMISARTAN [Concomitant]
     Active Substance: HYDROCHLOROTHIAZIDE\TELMISARTAN
     Indication: Product used for unknown indication
     Dosage: FORM STRENGTH 80/12.5MG / BRAND NAME NOT SPECIFIED, THERAPY START DATE AND END DATE: ASKU
  5. ASPIRIN [Concomitant]
     Active Substance: ASPIRIN
     Indication: Product used for unknown indication
     Dosage: FORM STRENGTH 80 MG / BRAND NAME NOT SPECIFIED, THERAPY START DATE AND END DATE: ASKU
  6. ATORVASTATIN [Concomitant]
     Active Substance: ATORVASTATIN
     Indication: Product used for unknown indication
     Dosage: FORM STRENGTH 40 MG / BRAND NAME NOT SPECIFIED, THERAPY START DATE AND END DATE: ASKU
  7. DOMPERIDONE [Concomitant]
     Active Substance: DOMPERIDONE
     Indication: Product used for unknown indication
     Dosage: MELTING TABLET, FORM STRENGTH 10MG / BRAND NAME NOT SPECIFIED, THERAPY START DATE AND END DATE: ASKU
  8. MONOCEDOCARD [Concomitant]
     Indication: Product used for unknown indication
     Dosage: RETARD CAPSULE, MGA, FORM STRENGTH 50MG/ BRAND NAME NOT SPECIFIED, THERAPY START DATE AND END DATE:
  9. TRAMADOL [Concomitant]
     Active Substance: TRAMADOL
     Indication: Product used for unknown indication
     Dosage: FORM STRENGTH 50 MG / BRAND NAME NOT SPECIFIED, THERAPY START DATE AND END DATE: ASKU
  10. CODEINE [Concomitant]
     Active Substance: CODEINE
     Indication: Product used for unknown indication
     Dosage: FORM STRENGTH 10 MG / BRAND NAME NOT SPECIFIED, THERAPY START DATE AND END DATE: ASKU
  11. CARBASPIRIN [Concomitant]
     Active Substance: CARBASPIRIN
     Indication: Product used for unknown indication
     Dosage: , FORM STRENGTH 38 MG / BRAND NAME NOT SPECIFIED, THERAPY START DATE AND END DATE: ASKU

REACTIONS (3)
  - Hypokalaemia [Recovering/Resolving]
  - Hypocalcaemia [Recovering/Resolving]
  - Hypomagnesaemia [Recovering/Resolving]

NARRATIVE: CASE EVENT DATE: 20220613
